FAERS Safety Report 9722373 (Version 1)
Quarter: 2013Q4

REPORT INFORMATION
  Report Type: Spontaneous
  Country: US (occurrence: None)
  Receive Date: 20131127
  Receipt Date: 20131127
  Transmission Date: 20140711
  Serious: Yes (Other)
  Sender: FDA-Public Use
  Company Number: None

PATIENT
  Age: 62 Year
  Sex: Male

DRUGS (1)
  1. MOVIPREP [Suspect]
     Dosage: TWO DOSES, ONCE DAILY, TAKEN BY MOUTH
     Route: 048
     Dates: start: 20131124, end: 20131124

REACTIONS (2)
  - Drug effect incomplete [None]
  - Circumstance or information capable of leading to medication error [None]
